FAERS Safety Report 16844519 (Version 1)
Quarter: 2019Q4

REPORT INFORMATION
  Report Type: Spontaneous
  Country: US (occurrence: US)
  Receive Date: 20190923
  Receipt Date: 20190923
  Transmission Date: 20200122
  Serious: Yes (Disabling)
  Sender: FDA-Public Use
  Company Number: None

PATIENT
  Age: 43 Year
  Sex: Male
  Weight: 78.3 kg

DRUGS (1)
  1. FINASTERIDE. [Suspect]
     Active Substance: FINASTERIDE
     Indication: ALOPECIA
     Route: 048

REACTIONS (11)
  - Depression [None]
  - Sensory disturbance [None]
  - Hypoacusis [None]
  - Glare [None]
  - Anxiety [None]
  - Weight decreased [None]
  - Hypoaesthesia [None]
  - Visual impairment [None]
  - Paraesthesia [None]
  - Depressed level of consciousness [None]
  - Dizziness [None]

NARRATIVE: CASE EVENT DATE: 20190506
